FAERS Safety Report 8346008-5 (Version None)
Quarter: 2012Q2

REPORT INFORMATION
  Report Type: 
  Country: None (occurrence: None)
  Receive Date: 20120509
  Receipt Date: 20120507
  Transmission Date: 20120825
  Serious: No
  Sender: FDA-Public Use
  Company Number: US-PFIZER INC-2012106827

PATIENT
  Sex: Female
  Weight: 54.422 kg

DRUGS (14)
  1. LYRICA [Suspect]
     Indication: JOINT DISLOCATION
  2. CALCIUM [Concomitant]
     Indication: SUPPLEMENTATION THERAPY
     Dosage: UNK
  3. LYRICA [Suspect]
     Indication: FEMORAL NERVE INJURY
  4. VITAMIN B-12 [Concomitant]
     Indication: SUPPLEMENTATION THERAPY
     Dosage: UNK
  5. LYRICA [Suspect]
     Indication: BACK PAIN
  6. MULTI-VITAMINS [Concomitant]
     Indication: SUPPLEMENTATION THERAPY
     Dosage: UNK
  7. LYRICA [Suspect]
     Indication: GROIN PAIN
  8. LYRICA [Suspect]
     Indication: PERIPHERAL NERVE LESION
  9. LYRICA [Suspect]
     Indication: PAIN IN EXTREMITY
  10. PROBIOTICS [Concomitant]
     Indication: SUPPLEMENTATION THERAPY
     Dosage: UNK
  11. BIOTIN [Concomitant]
     Indication: SUPPLEMENTATION THERAPY
     Dosage: UNK
  12. VITAMIN C [Concomitant]
     Indication: SUPPLEMENTATION THERAPY
     Dosage: UNK
  13. LYRICA [Suspect]
     Indication: ARTHRALGIA
     Dosage: 75 MG, DAILY
     Route: 048
     Dates: start: 20120409, end: 20120409
  14. FOLIC ACID [Concomitant]
     Indication: SUPPLEMENTATION THERAPY
     Dosage: UNK

REACTIONS (2)
  - SOMNOLENCE [None]
  - DIZZINESS [None]
